FAERS Safety Report 8008428-8 (Version None)
Quarter: 2011Q4

REPORT INFORMATION
  Report Type: 
  Country: None (occurrence: None)
  Receive Date: 20111227
  Receipt Date: 20111215
  Transmission Date: 20120403
  Serious: Yes (Hospitalization, Other)
  Sender: FDA-Public Use
  Company Number: US-ROCHE-794854

PATIENT
  Sex: Male
  Weight: 87.622 kg

DRUGS (2)
  1. ACCUTANE [Suspect]
     Indication: ACNE
     Route: 048
     Dates: start: 20000614, end: 20010101
  2. BACTRIM [Concomitant]

REACTIONS (11)
  - COLITIS ULCERATIVE [None]
  - INFLAMMATORY BOWEL DISEASE [None]
  - LIP DRY [None]
  - ALANINE AMINOTRANSFERASE INCREASED [None]
  - GASTROINTESTINAL DISORDER [None]
  - ILEUS [None]
  - ANAL FISTULA [None]
  - INTESTINAL OBSTRUCTION [None]
  - UVEITIS [None]
  - ASPARTATE AMINOTRANSFERASE INCREASED [None]
  - HAEMORRHOIDS [None]
